FAERS Safety Report 19505400 (Version 1)
Quarter: 2021Q3

REPORT INFORMATION
  Report Type: Spontaneous
  Country: US (occurrence: US)
  Receive Date: 20210708
  Receipt Date: 20210708
  Transmission Date: 20211014
  Serious: No
  Sender: FDA-Public Use
  Company Number: US-DRREDDYS-SPO/USA/21/0137375

PATIENT
  Age: 21 Year
  Sex: Female

DRUGS (2)
  1. ZENATANE [Suspect]
     Active Substance: ISOTRETINOIN
     Indication: PRODUCT USED FOR UNKNOWN INDICATION
     Dosage: RMA ISSUE DATE: 8/OCTOBER/2020 11:04:54 AM, 3/NOVEMBER/2020 6:05:18 PM
  2. ZENATANE [Suspect]
     Active Substance: ISOTRETINOIN
     Dosage: RMA ISSUE DATE: 18/DECEMBER/2020 4:31:44 PM, 28/JANUARY/2021 7:10:39 PM AND 10/MARCH/2021 12:17:33 P

REACTIONS (1)
  - Therapy cessation [Unknown]
